FAERS Safety Report 8340977-5 (Version None)
Quarter: 2012Q2

REPORT INFORMATION
  Report Type: 
  Country: None (occurrence: None)
  Receive Date: 20120507
  Receipt Date: 20120427
  Transmission Date: 20120825
  Serious: Yes (Other)
  Sender: FDA-Public Use
  Company Number: US-ASTRAZENECA-2012SE27850

PATIENT
  Age: 76 Year
  Sex: Male

DRUGS (11)
  1. NITROSTAT [Concomitant]
  2. GABAPENTIN [Concomitant]
     Dates: start: 20110216
  3. TRIMETHOPRIM + SULFAMETHOXAZOLE [Concomitant]
  4. HYDROCODONE BITARTRATE + ACETAMINOPHEN [Concomitant]
     Dosage: 5 MG-500 MG
     Dates: start: 20110207
  5. LISINOPRIL [Suspect]
     Route: 048
     Dates: start: 20110121
  6. SYNTHROID [Concomitant]
     Dates: start: 20110131
  7. METOPROLOL SUCCINATE EXTENDED RELEASE [Suspect]
     Route: 048
     Dates: start: 20110122
  8. VIGAMOX [Concomitant]
     Dates: start: 20110308
  9. SIMVASTATIN [Concomitant]
     Dates: start: 20110124
  10. PLAVIX [Concomitant]
     Dates: start: 20110122
  11. ALPRAZOLAM [Concomitant]
     Dates: start: 20110208

REACTIONS (1)
  - MYOCARDIAL INFARCTION [None]
